FAERS Safety Report 24071781 (Version 1)
Quarter: 2024Q3

REPORT INFORMATION
  Report Type: Report from Study
  Country: GB (occurrence: GB)
  Receive Date: 20240710
  Receipt Date: 20240710
  Transmission Date: 20241017
  Serious: No
  Sender: ROCHE
  Company Number: GB-ROCHE-3047040

PATIENT
  Sex: Female

DRUGS (2)
  1. EVRYSDI [Suspect]
     Active Substance: RISDIPLAM
     Indication: Spinal muscular atrophy
     Dosage: STRENGTH: 0.75MG/ML DOSE: 5MG (6.6ML ONCE DAILY), ALSO RECEIVED 0.75 MG
     Route: 048
     Dates: start: 20201216
  2. EVRYSDI [Suspect]
     Active Substance: RISDIPLAM
     Dosage: FREQUENCY TEXT:1
     Route: 065
     Dates: start: 202012

REACTIONS (2)
  - COVID-19 [Unknown]
  - Product dose omission issue [Unknown]

NARRATIVE: CASE EVENT DATE: 20220308
